FAERS Safety Report 14340156 (Version 1)
Quarter: 2017Q4

REPORT INFORMATION
  Report Type: Spontaneous
  Country: US (occurrence: US)
  Receive Date: 20171231
  Receipt Date: 20171231
  Transmission Date: 20180321
  Serious: Yes (Other)
  Sender: FDA-Public Use
  Company Number: US-AMGEN-USASP2017191820

PATIENT
  Age: 83 Year
  Sex: Male

DRUGS (1)
  1. PROCRIT [Suspect]
     Active Substance: ERYTHROPOIETIN
     Indication: PRODUCT USED FOR UNKNOWN INDICATION
     Dosage: 8600 UNIT, QWK (20000 U/ML)
     Route: 058
     Dates: start: 20170912, end: 20171115

REACTIONS (4)
  - Cerebrovascular accident [Unknown]
  - Arteriosclerosis [Unknown]
  - Colon cancer [Unknown]
  - Atrial fibrillation [Unknown]

NARRATIVE: CASE EVENT DATE: 2017
